FAERS Safety Report 4373558-9 (Version None)
Quarter: 2004Q1

REPORT INFORMATION
  Report Type: 
  Country: None (occurrence: None)
  Receive Date: 20040305
  Receipt Date: 20040128
  Transmission Date: 20041129
  Serious: Yes (Other)
  Sender: FDA-Public Use
  Company Number: 2004UW01522

PATIENT
  Age: 66 Year
  Sex: Male
  Weight: 104.3273 kg

DRUGS (4)
  1. CRESTOR [Suspect]
     Indication: BLOOD CHOLESTEROL INCREASED
     Dosage: 10 MG PO
     Route: 048
     Dates: start: 20040128
  2. AVANDIA [Concomitant]
  3. GLUCOTROL [Concomitant]
  4. VASOTEC [Concomitant]

REACTIONS (2)
  - INCOHERENT [None]
  - TREMOR [None]
